FAERS Safety Report 7433665-0 (Version None)
Quarter: 2011Q2

REPORT INFORMATION
  Report Type: 
  Country: None (occurrence: None)
  Receive Date: 20110422
  Receipt Date: 20110420
  Transmission Date: 20111010
  Serious: Yes (Hospitalization)
  Sender: FDA-Public Use
  Company Number: US-AMGEN-US182578

PATIENT

DRUGS (8)
  1. INFLUENZA VACCINE [Concomitant]
     Dosage: UNK UNK, ONE TIME DOSE
     Route: 064
     Dates: start: 20051111, end: 20051111
  2. CORTISONE [Concomitant]
     Dosage: UNK UNK, ONE TIME DOSE
     Route: 064
     Dates: start: 20060123, end: 20060123
  3. ACETAMINOPHEN [Concomitant]
     Dosage: 500 MG, TID
     Route: 064
     Dates: start: 20060514, end: 20060516
  4. ENBREL [Suspect]
     Dosage: UNK UNK, 2 TIMES/WK
     Route: 064
     Dates: start: 20050811, end: 20051111
  5. PHENOL [Concomitant]
     Dosage: UNK UNK, TID
     Route: 064
     Dates: start: 20051206, end: 20051206
  6. ANTIBIOTICS NOS [Concomitant]
     Dosage: UNK UNK, UNK
     Route: 064
     Dates: start: 20060329, end: 20060329
  7. PRENATAL VITAMINS [Concomitant]
     Dosage: UNK UNK, QD
     Route: 064
     Dates: start: 20050811, end: 20060516
  8. ROBITUSSIN-DM [Concomitant]
     Dosage: UNK UNK, QID
     Route: 064
     Dates: start: 20060502, end: 20060509

REACTIONS (7)
  - SEPTIC SHOCK [None]
  - NEONATAL RESPIRATORY DISTRESS SYNDROME [None]
  - PULMONARY HYPERTENSION [None]
  - PNEUMONIA [None]
  - CYANOSIS NEONATAL [None]
  - BACTERAEMIA [None]
  - HYPOTENSION [None]
